FAERS Safety Report 17979875 (Version 3)
Quarter: 2020Q3

REPORT INFORMATION
  Report Type: Spontaneous
  Country: ES (occurrence: ES)
  Receive Date: 20200703
  Receipt Date: 20200910
  Transmission Date: 20201103
  Serious: Yes (Hospitalization, Other)
  Sender: FDA-Public Use
  Company Number: ES-ASTRAZENECA-2020SE82766

PATIENT
  Age: 25703 Day
  Sex: Male
  Weight: 80 kg

DRUGS (6)
  1. PERMIXON [Concomitant]
     Active Substance: HERBALS\SAW PALMETTO
     Indication: BENIGN PROSTATIC HYPERPLASIA
     Route: 048
     Dates: start: 20200406
  2. METFORMIN [Concomitant]
     Active Substance: METFORMIN HYDROCHLORIDE
     Indication: BENIGN PROSTATIC HYPERPLASIA
     Route: 065
  3. EDISTRIDE [Suspect]
     Active Substance: DAPAGLIFLOZIN
     Indication: TYPE 2 DIABETES MELLITUS
     Route: 048
     Dates: start: 20200220, end: 20200607
  4. TRAJENTA [Concomitant]
     Active Substance: LINAGLIPTIN
     Indication: TYPE 2 DIABETES MELLITUS
  5. EDISTRIDE [Suspect]
     Active Substance: DAPAGLIFLOZIN
     Indication: TYPE 2 DIABETES MELLITUS
     Route: 048
     Dates: start: 202002, end: 20200609
  6. ALPRAZOLAM. [Concomitant]
     Active Substance: ALPRAZOLAM
     Route: 065

REACTIONS (17)
  - Fibrin increased [Unknown]
  - Chest pain [Unknown]
  - Urethral obstruction [Unknown]
  - Haematocrit decreased [Unknown]
  - Prostatic specific antigen increased [Unknown]
  - Blood glucose increased [Unknown]
  - Rash erythematous [Recovered/Resolved]
  - Red blood cell count decreased [Unknown]
  - Low density lipoprotein increased [Unknown]
  - Blood cholesterol increased [Unknown]
  - Arthropod bite [Unknown]
  - Back pain [Unknown]
  - Blood bilirubin increased [Unknown]
  - Acute kidney injury [Recovered/Resolved]
  - Glycosylated haemoglobin increased [Unknown]
  - Urethral dilatation [Unknown]
  - Haemoglobin decreased [Unknown]

NARRATIVE: CASE EVENT DATE: 20200605
